FAERS Safety Report 17813767 (Version 1)
Quarter: 2020Q2

REPORT INFORMATION
  Report Type: Spontaneous
  Country: NL (occurrence: GB)
  Receive Date: 20200521
  Receipt Date: 20200521
  Transmission Date: 20200714
  Serious: Yes (Hospitalization)
  Sender: FDA-Public Use
  Company Number: GB-FRESENIUS KABI-FK202004915

PATIENT
  Age: 58 Year
  Sex: Female
  Weight: 62.4 kg

DRUGS (2)
  1. GEMCITABINE. [Suspect]
     Active Substance: GEMCITABINE
     Indication: CHOLANGIOCARCINOMA
     Route: 042
     Dates: start: 20191106, end: 20200317
  2. CISPLATIN. [Suspect]
     Active Substance: CISPLATIN
     Indication: CHOLANGIOCARCINOMA
     Route: 042
     Dates: start: 20191106, end: 20200317

REACTIONS (3)
  - Gastric haemorrhage [Unknown]
  - Off label use [Unknown]
  - Platelet count decreased [Unknown]
